FAERS Safety Report 12248720 (Version 2)
Quarter: 2016Q2

REPORT INFORMATION
  Report Type: Report from Study
  Country: DE (occurrence: DE)
  Receive Date: 20160408
  Receipt Date: 20160421
  Transmission Date: 20160815
  Serious: Yes (Death, Other)
  Sender: FDA-Public Use
  Company Number: DE-ROCHE-1738637

PATIENT

DRUGS (1)
  1. ALTEPLASE [Suspect]
     Active Substance: ALTEPLASE
     Indication: ISCHAEMIC STROKE
     Route: 042

REACTIONS (5)
  - Reocclusion [Unknown]
  - Artery dissection [Unknown]
  - Haemorrhage intracranial [Fatal]
  - Embolism [Unknown]
  - Puncture site haemorrhage [Unknown]
